FAERS Safety Report 10640993 (Version 1)
Quarter: 2014Q4

REPORT INFORMATION
  Report Type: Spontaneous
  Country: US (occurrence: US)
  Receive Date: 20141209
  Receipt Date: 20141209
  Transmission Date: 20150529
  Serious: No
  Sender: FDA-Public Use
  Company Number: US-PFIZER INC-2014329637

PATIENT
  Age: 25 Year
  Sex: Female
  Weight: 59 kg

DRUGS (2)
  1. MAGNESIUM HYDROXIDE. [Suspect]
     Active Substance: MAGNESIUM HYDROXIDE
     Indication: CONSTIPATION
     Dosage: 1200 MG, DAILY (2-4 TABLE SPOONS IN 24 HOURS)
     Route: 048
  2. ADVIL [Suspect]
     Active Substance: IBUPROFEN
     Indication: HEADACHE
     Dosage: 200 MG BY MOUTH 2 TABS NO MORE THAN 6 TABLETS IN 24 HOUR)
     Route: 048
     Dates: start: 20141129, end: 20141129

REACTIONS (1)
  - Nausea [Recovered/Resolved]

NARRATIVE: CASE EVENT DATE: 20141129
